FAERS Safety Report 9444122 (Version 1)
Quarter: 2013Q3

REPORT INFORMATION
  Report Type: Spontaneous
  Country: US (occurrence: None)
  Receive Date: 20130806
  Receipt Date: 20130806
  Transmission Date: 20140515
  Serious: Yes (Other)
  Sender: FDA-Public Use
  Company Number: None

PATIENT
  Age: 90 Year
  Sex: Female

DRUGS (1)
  1. ADVAIR [Suspect]
     Indication: ASTHMA
     Dosage: 1 PUFF EVERY 12 HOURS
     Dates: start: 2005, end: 20130401

REACTIONS (3)
  - Dysphonia [None]
  - Vocal cord disorder [None]
  - Increased upper airway secretion [None]
